FAERS Safety Report 18437689 (Version 1)
Quarter: 2020Q4

REPORT INFORMATION
  Report Type: Spontaneous
  Country: US (occurrence: US)
  Receive Date: 20201028
  Receipt Date: 20201028
  Transmission Date: 20210114
  Serious: Yes (Hospitalization)
  Sender: FDA-Public Use
  Company Number: US-MYLANLABS-2020M1090646

PATIENT
  Age: 66 Year
  Sex: Male

DRUGS (3)
  1. ELOXATIN [Concomitant]
     Active Substance: OXALIPLATIN
     Indication: ADENOCARCINOMA OF COLON
     Dosage: UNK UNK, CYCLE
     Route: 065
  2. LEUCORIN [Concomitant]
     Indication: ADENOCARCINOMA OF COLON
     Dosage: UNK UNK, CYCLE
     Route: 065
  3. FLUOROURACIL. [Suspect]
     Active Substance: FLUOROURACIL
     Indication: ADENOCARCINOMA OF COLON
     Dosage: UNK UNK, CYCLE
     Route: 065

REACTIONS (2)
  - Acute myocardial infarction [Unknown]
  - Arteriospasm coronary [Unknown]
